FAERS Safety Report 6645072-9 (Version None)
Quarter: 2010Q1

REPORT INFORMATION
  Report Type: 
  Country: None (occurrence: None)
  Receive Date: 20100319
  Receipt Date: 20100319
  Transmission Date: 20100710
  Serious: Yes (Hospitalization)
  Sender: FDA-Public Use
  Company Number: None

PATIENT
  Age: 64 Year
  Sex: Male
  Weight: 131.5 kg

DRUGS (21)
  1. DOCETAXEL [Suspect]
     Indication: SMALL CELL CARCINOMA
     Dosage: 129MG Q21D, IV
     Route: 042
     Dates: start: 20100223
  2. FLUOROURACIL [Suspect]
     Indication: SMALL CELL CARCINOMA
     Dosage: 5504MG, Q 21 DAYS, IV
     Route: 042
     Dates: start: 20100223
  3. CISPLATIN [Suspect]
     Dosage: 172MG, Q21D IV
     Route: 042
  4. AMITRIPTYLINE HCL [Concomitant]
  5. COMMIT LOZENGES [Concomitant]
  6. DECADRON [Concomitant]
  7. DILTIAZEM HCL [Concomitant]
  8. ASPIRIN [Concomitant]
  9. ERYTHROMYCIN [Concomitant]
  10. GABAPENTIN [Concomitant]
  11. GINKO BILOBA [Concomitant]
  12. GLUCOSAMINE [Concomitant]
  13. KAPIDEX [Concomitant]
  14. KEFLEX [Concomitant]
  15. LIDOCAINE/MAALOX/DIPHENHYDRAMINE [Concomitant]
  16. LIPITOR [Concomitant]
  17. MOTOCLOPRAMIDE [Concomitant]
  18. OXCARBAZEPINE [Concomitant]
  19. OXYCODONE [Concomitant]
  20. VALIUM [Concomitant]
  21. ZOFRAN [Concomitant]

REACTIONS (4)
  - DIARRHOEA [None]
  - FEBRILE NEUTROPENIA [None]
  - ORAL CANDIDIASIS [None]
  - URINARY RETENTION [None]
